FAERS Safety Report 13014520 (Version 2)
Quarter: 2016Q4

REPORT INFORMATION
  Report Type: Report from Study
  Country: JP (occurrence: JP)
  Receive Date: 20161209
  Receipt Date: 20161213
  Transmission Date: 20170207
  Serious: Yes (Death, Hospitalization, Other)
  Sender: FDA-Public Use
  Company Number: JP-BRISTOL-MYERS SQUIBB COMPANY-BMS-2016-104903

PATIENT
  Sex: Female

DRUGS (3)
  1. ASPIRIN. [Suspect]
     Active Substance: ASPIRIN
     Indication: STENT PLACEMENT
     Dosage: 100 MG PER DAY
     Route: 048
     Dates: start: 20150422, end: 20160601
  2. APIXABAN [Suspect]
     Active Substance: APIXABAN
     Indication: CEREBROVASCULAR ACCIDENT PROPHYLAXIS
     Dosage: 2.5 MG PER DAY
     Route: 048
     Dates: start: 20150422, end: 20160601
  3. CLOPIDOGREL BISULFATE. [Suspect]
     Active Substance: CLOPIDOGREL BISULFATE
     Indication: STENT PLACEMENT
     Dosage: 75 MG PER DAY
     Route: 048
     Dates: start: 20150422, end: 20160601

REACTIONS (1)
  - Cardiac failure [Fatal]
